FAERS Safety Report 25127869 (Version 1)
Quarter: 2025Q1

REPORT INFORMATION
  Report Type: Spontaneous
  Country: US (occurrence: US)
  Receive Date: 20250327
  Receipt Date: 20250327
  Transmission Date: 20250409
  Serious: No
  Sender: ABBVIE
  Company Number: US-ABBVIE-6195688

PATIENT
  Sex: Female

DRUGS (2)
  1. SUCRALFATE [Suspect]
     Active Substance: SUCRALFATE
     Indication: Product used for unknown indication
     Route: 065
     Dates: start: 202502
  2. VOQUEZNA [Suspect]
     Active Substance: VONOPRAZAN FUMARATE
     Indication: Hyperchlorhydria
     Route: 048
     Dates: start: 202502

REACTIONS (3)
  - Dysphagia [Unknown]
  - Unevaluable event [Unknown]
  - Constipation [Unknown]

NARRATIVE: CASE EVENT DATE: 20250304
